FAERS Safety Report 16064623 (Version 2)
Quarter: 2019Q2

REPORT INFORMATION
  Report Type: Spontaneous
  Country: US (occurrence: US)
  Receive Date: 20190312
  Receipt Date: 20190426
  Transmission Date: 20190711
  Serious: Yes (Death, Hospitalization, Other)
  Sender: FDA-Public Use
  Company Number: US-PFIZER INC-2019103579

PATIENT
  Age: 89 Year
  Sex: Male
  Weight: 95.25 kg

DRUGS (2)
  1. OPSUMIT [Concomitant]
     Active Substance: MACITENTAN
     Indication: PULMONARY HYPERTENSION
     Dosage: 10 MG, DAILY
     Route: 048
  2. REVATIO [Suspect]
     Active Substance: SILDENAFIL CITRATE
     Indication: PULMONARY HYPERTENSION
     Dosage: 20 MG, 3X/DAY
     Route: 048
     Dates: start: 200904, end: 20190303

REACTIONS (4)
  - Respiratory distress [Fatal]
  - Diabetes mellitus [Fatal]
  - Renal failure [Fatal]
  - Hypotension [Fatal]

NARRATIVE: CASE EVENT DATE: 20190303
